FAERS Safety Report 9537196 (Version 2)
Quarter: 2013Q3

REPORT INFORMATION
  Report Type: Spontaneous
  Country: US (occurrence: US)
  Receive Date: 20130919
  Receipt Date: 20130919
  Transmission Date: 20140515
  Serious: No
  Sender: FDA-Public Use
  Company Number: US-PURDUE-USA-2012-0094106

PATIENT
  Age: 83 Year
  Sex: Male
  Weight: 77.1 kg

DRUGS (6)
  1. INTERMEZZO [Suspect]
     Indication: MIDDLE INSOMNIA
     Dosage: 3.5 MG, PRN
     Route: 060
     Dates: start: 20120916
  2. PLAVIX [Concomitant]
     Dosage: 75 MG, UNK
  3. ASPIRIN [Concomitant]
     Dosage: 83 MG, UNK
  4. RAMIPRIL [Concomitant]
     Dosage: 10 MG, UNK
  5. SIMVASTATIN [Concomitant]
     Dosage: 80 MG, UNK
  6. BISOPROLOL FUMARATE [Concomitant]
     Dosage: 5 MG, UNK

REACTIONS (5)
  - Drug ineffective [Unknown]
  - Product size issue [Unknown]
  - Product taste abnormal [Unknown]
  - Product quality issue [Unknown]
  - Product solubility abnormal [Unknown]
